FAERS Safety Report 10671695 (Version 1)
Quarter: 2014Q4

REPORT INFORMATION
  Report Type: Spontaneous
  Country: US (occurrence: None)
  Receive Date: 20141222
  Receipt Date: 20141222
  Transmission Date: 20150529
  Serious: No
  Sender: FDA-Public Use
  Company Number: None

PATIENT
  Age: 60 Year
  Sex: Male

DRUGS (3)
  1. METHYL PREDNISONE 4MG GREENSTONE LLC [Suspect]
     Active Substance: METHYLPREDNISOLONE
     Indication: LIGAMENT DISORDER
     Dosage: 2, THREE TIMES DAILY, TAKEN BY MOUTH
     Route: 048
  2. METHYL PREDNISONE 4MG GREENSTONE LLC [Suspect]
     Active Substance: METHYLPREDNISOLONE
     Indication: TENDON DISORDER
     Dosage: 2, THREE TIMES DAILY, TAKEN BY MOUTH
     Route: 048
  3. METHYL PREDNISONE 4MG GREENSTONE LLC [Suspect]
     Active Substance: METHYLPREDNISOLONE
     Indication: INFLAMMATION
     Dosage: 2, THREE TIMES DAILY, TAKEN BY MOUTH
     Route: 048

REACTIONS (1)
  - Flushing [None]

NARRATIVE: CASE EVENT DATE: 20141220
